FAERS Safety Report 8330488-5 (Version None)
Quarter: 2012Q2

REPORT INFORMATION
  Report Type: 
  Country: None (occurrence: None)
  Receive Date: 20120502
  Receipt Date: 20120402
  Transmission Date: 20120825
  Serious: No
  Sender: FDA-Public Use
  Company Number: US-AMGEN-USASP2012021070

PATIENT
  Sex: Female

DRUGS (2)
  1. ENBREL [Suspect]
     Indication: RHEUMATOID ARTHRITIS
     Dosage: 50 MG, QWK
     Dates: start: 20071201
  2. ENBREL [Suspect]
     Indication: ARTHROPATHY

REACTIONS (9)
  - PAIN OF SKIN [None]
  - HAEMORRHAGE [None]
  - RASH [None]
  - LYMPHADENOPATHY [None]
  - FATIGUE [None]
  - EAR INFECTION [None]
  - HOT FLUSH [None]
  - CONTUSION [None]
  - ALOPECIA [None]
